FAERS Safety Report 6490167-6 (Version None)
Quarter: 2009Q4

REPORT INFORMATION
  Report Type: 
  Country: None (occurrence: None)
  Receive Date: 20091211
  Receipt Date: 20090916
  Transmission Date: 20100525
  Serious: No
  Sender: FDA-Public Use
  Company Number: A0807680A

PATIENT
  Sex: Female

DRUGS (2)
  1. FLONASE [Suspect]
     Indication: ALLERGIC SINUSITIS
     Route: 045
     Dates: start: 19950101, end: 19950101
  2. UNKNOWN [Concomitant]

REACTIONS (3)
  - CONDITION AGGRAVATED [None]
  - HYPERSENSITIVITY [None]
  - SINUS DISORDER [None]
